FAERS Safety Report 8896352 (Version 1)
Quarter: 2012Q4

REPORT INFORMATION
  Report Type: Spontaneous
  Country: US (occurrence: None)
  Receive Date: 20121102
  Receipt Date: 20121102
  Transmission Date: 20130627
  Serious: Yes (Hospitalization, Other)
  Sender: FDA-Public Use
  Company Number: 2012P1060996

PATIENT
  Age: 71 Year
  Sex: Female
  Weight: 95.26 kg

DRUGS (4)
  1. ALENDRONATE SODIUIM [Suspect]
     Indication: OSTEOPOROSIS
     Route: 048
     Dates: start: 2011
  2. NAPROSYN [Concomitant]
  3. ^VITAMIN^ [Concomitant]
  4. CALCIUM [Concomitant]

REACTIONS (3)
  - Myalgia [None]
  - Arthralgia [None]
  - Knee arthroplasty [None]
